FAERS Safety Report 18157229 (Version 1)
Quarter: 2020Q3

REPORT INFORMATION
  Report Type: Spontaneous
  Country: US (occurrence: US)
  Receive Date: 20200817
  Receipt Date: 20200817
  Transmission Date: 20201103
  Serious: Yes (Other)
  Sender: FDA-Public Use
  Company Number: None

PATIENT
  Age: 78 Year
  Sex: Female

DRUGS (9)
  1. EQUATE RESTORE PLUS LUBRICANT EYE [Suspect]
     Active Substance: CARBOXYMETHYLCELLULOSE SODIUM
     Indication: DRY EYE
     Dosage: ?          QUANTITY:70 DROP(S);?
     Route: 047
  2. INHALERS FOR COPD [Concomitant]
  3. NEBULIZER [Concomitant]
     Active Substance: DEVICE
  4. SYNTHROID [Concomitant]
     Active Substance: LEVOTHYROXINE SODIUM
  5. FISH OIL [Concomitant]
     Active Substance: FISH OIL
  6. VITAMINS [Concomitant]
     Active Substance: VITAMINS
  7. COENZYME Q10 [Concomitant]
     Active Substance: DIETARY SUPPLEMENT\UBIDECARENONE
  8. HAIR, SKIN + NAILS FORMULA [Concomitant]
  9. JOINT SUPPLEMENTS [Concomitant]

REACTIONS (2)
  - Product quality issue [None]
  - Eye irritation [None]

NARRATIVE: CASE EVENT DATE: 20200815
